FAERS Safety Report 22057318 (Version 1)
Quarter: 2023Q1

REPORT INFORMATION
  Report Type: Spontaneous
  Country: US (occurrence: US)
  Receive Date: 20230303
  Receipt Date: 20230303
  Transmission Date: 20230418
  Serious: Yes (Other)
  Sender: FDA-Public Use
  Company Number: US-Shilpa Medicare Limited-SML-US-2023-00241

PATIENT
  Age: 48 Year
  Sex: Female

DRUGS (2)
  1. CAPECITABINE [Suspect]
     Active Substance: CAPECITABINE
     Indication: Invasive ductal breast carcinoma
  2. CAPECITABINE [Suspect]
     Active Substance: CAPECITABINE
     Indication: Metastases to bone

REACTIONS (5)
  - Malignant pleural effusion [Unknown]
  - Metastases to lung [Unknown]
  - Disease progression [Unknown]
  - Condition aggravated [Unknown]
  - Drug ineffective [Unknown]
